FAERS Safety Report 9316274 (Version 2)
Quarter: 2013Q2

REPORT INFORMATION
  Report Type: Spontaneous
  Country: DE (occurrence: None)
  Receive Date: 20130109
  Receipt Date: 20130424
  Transmission Date: 20140414
  Serious: Yes (Death, Hospitalization)
  Sender: FDA-Public Use
  Company Number: 2012DE000833

PATIENT
  Age: 53 Year
  Sex: Male
  Weight: 81 kg

DRUGS (1)
  1. PONATINIB (AP24534) TABLET [Suspect]
     Indication: CHRONIC MYELOID LEUKAEMIA
     Route: 048
     Dates: start: 20120903, end: 20120921

REACTIONS (9)
  - Cerebral infarction [None]
  - Basilar artery stenosis [None]
  - Respiratory disorder [None]
  - Brain death [None]
  - Agitation [None]
  - Restlessness [None]
  - Disorientation [None]
  - Pneumonia [None]
  - Cerebral arteriosclerosis [None]
